FAERS Safety Report 5412088-X (Version None)
Quarter: 2007Q3

REPORT INFORMATION
  Report Type: 
  Country: None (occurrence: None)
  Receive Date: 20070713
  Receipt Date: 20070328
  Transmission Date: 20080115
  Serious: No
  Sender: FDA-Public Use
  Company Number: 2007SP001115

PATIENT
  Age: 58 Year
  Sex: Female
  Weight: 72.5755 kg

DRUGS (12)
  1. LUNESTA [Suspect]
     Indication: INSOMNIA
     Dosage: 3 MG;HS;ORAL, 2 MG;HS;ORAL, 2 MG;PRN;ORAL, 3 MG;HS;ORAL, 1 MG;HS;ORAL
     Route: 048
     Dates: start: 20070101, end: 20070101
  2. LUNESTA [Suspect]
     Indication: INSOMNIA
     Dosage: 3 MG;HS;ORAL, 2 MG;HS;ORAL, 2 MG;PRN;ORAL, 3 MG;HS;ORAL, 1 MG;HS;ORAL
     Route: 048
     Dates: start: 20070201, end: 20070101
  3. LUNESTA [Suspect]
     Indication: INSOMNIA
     Dosage: 3 MG;HS;ORAL, 2 MG;HS;ORAL, 2 MG;PRN;ORAL, 3 MG;HS;ORAL, 1 MG;HS;ORAL
     Route: 048
     Dates: start: 20060101, end: 20070201
  4. LUNESTA [Suspect]
     Indication: INSOMNIA
     Dosage: 3 MG;HS;ORAL, 2 MG;HS;ORAL, 2 MG;PRN;ORAL, 3 MG;HS;ORAL, 1 MG;HS;ORAL
     Route: 048
     Dates: start: 20070101
  5. WELLBUTRIN [Concomitant]
  6. LEXAPRO [Concomitant]
  7. GABAPENTIN [Concomitant]
  8. FOSAMAX [Concomitant]
  9. BENTYL [Concomitant]
  10. FOLIC ACID [Concomitant]
  11. CALCIUM [Concomitant]
  12. VITAMIN CAP [Concomitant]

REACTIONS (2)
  - DYSGEUSIA [None]
  - INSOMNIA [None]
